FAERS Safety Report 18220974 (Version 2)
Quarter: 2020Q4

REPORT INFORMATION
  Report Type: Report from Study
  Country: None (occurrence: AU)
  Receive Date: 20200902
  Receipt Date: 20201011
  Transmission Date: 20210113
  Serious: Yes (Other)
  Sender: FDA-Public Use
  Company Number: AU-ABBVIE-20K-008-3543293-00

PATIENT
  Age: 43 Year
  Sex: Male
  Weight: 115 kg

DRUGS (3)
  1. HUMIRA [Suspect]
     Active Substance: ADALIMUMAB
     Indication: CROHN^S DISEASE
     Route: 058
     Dates: start: 2018
  2. 6-MERCAPTOPURINE [Suspect]
     Active Substance: MERCAPTOPURINE
     Indication: CROHN^S DISEASE
     Route: 048
     Dates: start: 2018
  3. ALLOPURINOL. [Suspect]
     Active Substance: ALLOPURINOL
     Indication: CROHN^S DISEASE
     Route: 048
     Dates: start: 2018

REACTIONS (9)
  - Anal ulcer [Not Recovered/Not Resolved]
  - Anal incontinence [Unknown]
  - Intestinal anastomosis complication [Recovering/Resolving]
  - Drug level decreased [Unknown]
  - Frequent bowel movements [Unknown]
  - Mucosal ulceration [Unknown]
  - Intestinal ulcer [Not Recovered/Not Resolved]
  - Diarrhoea [Unknown]
  - Abdominal pain [Unknown]

NARRATIVE: CASE EVENT DATE: 20200828
